FAERS Safety Report 21948007 (Version 2)
Quarter: 2023Q1

REPORT INFORMATION
  Report Type: Spontaneous
  Country: US (occurrence: US)
  Receive Date: 20230203
  Receipt Date: 20230306
  Transmission Date: 20230418
  Serious: No
  Sender: FDA-Public Use
  Company Number: US-LEO Pharma-348866

PATIENT
  Sex: Female

DRUGS (2)
  1. ADBRY [Suspect]
     Active Substance: TRALOKINUMAB-LDRM
     Indication: Dermatitis atopic
     Dosage: 300 MG
     Route: 058
     Dates: start: 202212
  2. PREDNISONE [Concomitant]
     Active Substance: PREDNISONE
     Indication: Muscle spasms

REACTIONS (3)
  - Feeling jittery [Unknown]
  - Muscle spasms [Unknown]
  - Restlessness [Unknown]
